FAERS Safety Report 4824234-7 (Version None)
Quarter: 2005Q4

REPORT INFORMATION
  Report Type: 
  Country: None (occurrence: None)
  Receive Date: 20051108
  Receipt Date: 20051031
  Transmission Date: 20060501
  Serious: Yes (Other)
  Sender: FDA-Public Use
  Company Number: 2005137531

PATIENT
  Sex: Female
  Weight: 80.7403 kg

DRUGS (7)
  1. LIPITOR [Suspect]
     Indication: BLOOD CHOLESTEROL INCREASED
     Dates: start: 20040801
  2. CELEBREX [Suspect]
     Indication: BONE PAIN
  3. ACCUPRIL [Suspect]
     Indication: BLOOD CHOLESTEROL INCREASED
     Dosage: (1 IN 1 D),
  4. ACCUPRIL [Suspect]
     Indication: HYPERTENSION
     Dosage: (1 IN 1 D),
  5. BEXTRA [Suspect]
     Indication: BONE PAIN
  6. TOPROL (METOPROLOL) [Concomitant]
  7. HYDROCHLOROTHIAZIDE [Concomitant]

REACTIONS (4)
  - BLOOD CHOLESTEROL INCREASED [None]
  - CORONARY ARTERY OCCLUSION [None]
  - DRUG INEFFECTIVE [None]
  - HYPERTENSION [None]
